FAERS Safety Report 10691885 (Version 2)
Quarter: 2015Q1

REPORT INFORMATION
  Report Type: Spontaneous
  Country: JP (occurrence: JP)
  Receive Date: 20150105
  Receipt Date: 20150112
  Transmission Date: 20150720
  Serious: Yes (Hospitalization)
  Sender: FDA-Public Use
  Company Number: JP-009507513-1412JPN013555

PATIENT
  Age: 42 Year
  Sex: Male

DRUGS (1)
  1. PROPECIA [Suspect]
     Active Substance: FINASTERIDE
     Indication: ANDROGENETIC ALOPECIA
     Dosage: 1 MG, QD
     Route: 048
     Dates: start: 201409, end: 20141224

REACTIONS (4)
  - Hepatic function abnormal [Unknown]
  - Hepatitis A [Recovering/Resolving]
  - Acute hepatic failure [Recovering/Resolving]
  - Listless [Unknown]

NARRATIVE: CASE EVENT DATE: 20141225
